FAERS Safety Report 7880315-5 (Version None)
Quarter: 2011Q4

REPORT INFORMATION
  Report Type: 
  Country: None (occurrence: None)
  Receive Date: 20111101
  Receipt Date: 20111029
  Transmission Date: 20120403
  Serious: Yes (Hospitalization, Other)
  Sender: FDA-Public Use
  Company Number: US-BAYER-2011-069898

PATIENT
  Age: 45 Year
  Sex: Male

DRUGS (4)
  1. SORAFENIB (RAF KINASE INHIBITOR) [Suspect]
     Indication: HEPATIC NEOPLASM MALIGNANT
     Dosage: 200 MG, QD
     Dates: start: 20110709, end: 20110805
  2. SORAFENIB (RAF KINASE INHIBITOR) [Suspect]
     Dosage: 200 MG, QD
     Dates: start: 20111001
  3. ANTIHYPERTENSIVES [Concomitant]
  4. LORTAB [Concomitant]
     Indication: PAIN
     Dosage: UNK UNK, PRN

REACTIONS (3)
  - LIMB INJURY [None]
  - HEART RATE INCREASED [None]
  - BLOOD PRESSURE ABNORMAL [None]
